FAERS Safety Report 11169436 (Version 1)
Quarter: 2015Q2

REPORT INFORMATION
  Report Type: Spontaneous
  Country: SE (occurrence: SE)
  Receive Date: 20150605
  Receipt Date: 20150605
  Transmission Date: 20150821
  Serious: Yes (Other)
  Sender: FDA-Public Use
  Company Number: SE-ELI_LILLY_AND_COMPANY-SE201506000681

PATIENT
  Sex: Female

DRUGS (5)
  1. INSULIN [Concomitant]
     Active Substance: INSULIN NOS
  2. VITAMIN D [Concomitant]
     Active Substance: CHOLECALCIFEROL
  3. FORSTEO [Suspect]
     Active Substance: TERIPARATIDE
     Indication: OSTEOPOROSIS
     Dosage: UNK UNK, UNKNOWN
     Route: 065
     Dates: start: 20150511
  4. CALCIUM [Concomitant]
     Active Substance: CALCIUM
  5. POTASSIUM [Concomitant]
     Active Substance: POTASSIUM

REACTIONS (8)
  - Coordination abnormal [Unknown]
  - Pyrexia [Unknown]
  - Chest discomfort [Unknown]
  - Gait disturbance [Unknown]
  - Arthralgia [Unknown]
  - Nausea [Unknown]
  - Dyspnoea [Unknown]
  - Pain in extremity [Unknown]
